FAERS Safety Report 5944463-9 (Version None)
Quarter: 2008Q4

REPORT INFORMATION
  Report Type: 
  Country: None (occurrence: None)
  Receive Date: 20081107
  Receipt Date: 20081030
  Transmission Date: 20090506
  Serious: Yes (Hospitalization)
  Sender: FDA-Public Use
  Company Number: US-JNJFOC-20081100416

PATIENT
  Sex: Male

DRUGS (11)
  1. FENTANYL TRANSDERMAL SYSTEM [Suspect]
     Indication: SPINAL FRACTURE
     Route: 062
  2. FOSAMAX [Concomitant]
     Indication: OSTEOPOROSIS
     Route: 048
  3. LASIX [Concomitant]
     Indication: DRUG USE FOR UNKNOWN INDICATION
     Route: 048
  4. AVAPRO [Concomitant]
     Indication: ARTHRITIS
     Route: 048
  5. PEPCID [Concomitant]
     Indication: GASTROINTESTINAL DISORDER THERAPY
     Route: 048
  6. SERTROLINE [Concomitant]
     Indication: DEPRESSION
     Route: 048
  7. PREDNISONE TAB [Concomitant]
     Route: 048
  8. PREDNISONE TAB [Concomitant]
     Indication: RHEUMATOID ARTHRITIS
     Route: 048
  9. ADVAIR DISKUS 100/50 [Concomitant]
     Indication: LUNG DISORDER
     Dosage: DOSE= II PUFFS
     Route: 055
  10. ALBUTEROL [Concomitant]
     Indication: LUNG DISORDER
     Route: 055
  11. BROMIDE [Concomitant]
     Indication: LUNG DISORDER
     Route: 055

REACTIONS (10)
  - AGITATION [None]
  - AORTIC ANEURYSM [None]
  - FALL [None]
  - HALLUCINATION [None]
  - HYPOTENSION [None]
  - LIVER FUNCTION TEST ABNORMAL [None]
  - PALPITATIONS [None]
  - PERSONALITY CHANGE [None]
  - RENAL CYST [None]
  - WEIGHT DECREASED [None]
